FAERS Safety Report 25982755 (Version 1)
Quarter: 2025Q4

REPORT INFORMATION
  Report Type: Other
  Country: EU (occurrence: EU)
  Receive Date: 20251031
  Receipt Date: 20251031
  Transmission Date: 20260117
  Serious: Yes (Death)
  Sender: Steriscience PTE
  Company Number: EU-QIL-007359

PATIENT
  Age: 8 Hour
  Sex: Female
  Weight: 1 kg

DRUGS (3)
  1. MEROPENEM [Suspect]
     Active Substance: MEROPENEM
     Indication: Morganella infection
     Dosage: UNK
     Route: 065
  2. MEROPENEM [Suspect]
     Active Substance: MEROPENEM
     Indication: Sepsis neonatal
     Dosage: UNK
     Route: 065
  3. Surfactants nos [Concomitant]
     Indication: Neonatal respiratory distress syndrome
     Dosage: UNK
     Route: 065

REACTIONS (1)
  - Drug ineffective [Fatal]
